FAERS Safety Report 21839207 (Version 1)
Quarter: 2023Q1

REPORT INFORMATION
  Report Type: Spontaneous
  Country: US (occurrence: None)
  Receive Date: 20230107
  Receipt Date: 20230107
  Transmission Date: 20230418
  Serious: Yes (Hospitalization)
  Sender: FDA-Public Use
  Company Number: None

PATIENT
  Age: 38 Year
  Sex: Male
  Weight: 78.8 kg

DRUGS (10)
  1. CYCLOPHOSPHAMIDE [Suspect]
     Active Substance: CYCLOPHOSPHAMIDE
     Dates: end: 20221124
  2. CYTARABINE [Suspect]
     Active Substance: CYTARABINE
     Dates: end: 20221217
  3. SPRYCEL [Suspect]
     Active Substance: DASATINIB
     Dates: end: 20220914
  4. DEXAMETHASONE [Suspect]
     Active Substance: DEXAMETHASONE
     Dates: start: 20221201
  5. DOXORUBICIN HYDROCHLORIDE [Suspect]
     Active Substance: DOXORUBICIN HYDROCHLORIDE
     Dates: end: 20221127
  6. MESNA [Suspect]
     Active Substance: MESNA
     Dates: end: 20221125
  7. METHOTREXATE [Suspect]
     Active Substance: METHOTREXATE
     Dates: end: 20221216
  8. PONATINIB [Suspect]
     Active Substance: PONATINIB
     Dates: end: 20221225
  9. PREDNISONE [Suspect]
     Active Substance: PREDNISONE
     Dates: end: 20220912
  10. VINCRISTINE SULFATE [Suspect]
     Active Substance: VINCRISTINE SULFATE
     Dates: end: 20221202

REACTIONS (7)
  - Febrile neutropenia [None]
  - Chills [None]
  - Pancytopenia [None]
  - Fatigue [None]
  - Bacteraemia [None]
  - Therapy interrupted [None]
  - Biopsy bone [None]

NARRATIVE: CASE EVENT DATE: 20221225
